FAERS Safety Report 7809860 (Version 7)
Quarter: 2013Q3

REPORT INFORMATION
  Report Type: Spontaneous
  Country: BR (occurrence: BR)
  Receive Date: 20110211
  Receipt Date: 20130711
  Transmission Date: 20140515
  Serious: Yes (Life-Threatening, Hospitalization, Other)
  Sender: FDA-Public Use
  Company Number: GB-AMGEN-BRASP2011007846

PATIENT
  Age: 61 Year
  Sex: Female
  Weight: 59 kg

DRUGS (6)
  1. GRANULOKINE [Suspect]
     Indication: WHITE BLOOD CELL COUNT INCREASED
     Dosage: 1 ML DAILY (5 AMPULES)
     Route: 058
     Dates: start: 20110116
  2. GRANULOKINE [Suspect]
     Dosage: 300 MUG, QD
     Route: 058
     Dates: start: 20110117, end: 20110119
  3. GRANULOKINE [Suspect]
     Dosage: UNK
     Route: 058
     Dates: start: 20110118
  4. GRANULOKINE [Suspect]
     Dosage: UNK
     Route: 042
     Dates: start: 20110119
  5. GRANULOKINE [Suspect]
     Dosage: UNK
     Route: 058
     Dates: start: 20110120, end: 20110120
  6. GRANULOKINE [Suspect]
     Dosage: UNK
     Route: 058
     Dates: start: 20110121, end: 20110121

REACTIONS (14)
  - Leukopenia [Recovering/Resolving]
  - Platelet count decreased [Recovered/Resolved]
  - Pyrexia [Recovered/Resolved]
  - Neutrophil count decreased [Not Recovered/Not Resolved]
  - Incorrect route of drug administration [Unknown]
  - Drug ineffective [Unknown]
  - Haemoglobin decreased [Recovered/Resolved]
  - Haematocrit decreased [Recovered/Resolved]
  - Red blood cell count decreased [Recovering/Resolving]
  - Red cell distribution width increased [Recovered/Resolved]
  - Haematoma [Recovered/Resolved]
  - Asthenia [Recovered/Resolved]
  - Application site pain [Unknown]
  - Fatigue [Recovered/Resolved]
